FAERS Safety Report 7709252-3 (Version None)
Quarter: 2011Q3

REPORT INFORMATION
  Report Type: 
  Country: None (occurrence: None)
  Receive Date: 20110825
  Receipt Date: 20110823
  Transmission Date: 20111222
  Serious: Yes (Death)
  Sender: FDA-Public Use
  Company Number: US-PFIZER INC-2011196249

PATIENT
  Sex: Female

DRUGS (3)
  1. NORVASC [Suspect]
     Dosage: UNK
     Dates: start: 20110627
  2. LIPITOR [Suspect]
     Dosage: UNK
     Dates: start: 20110627
  3. EFFEXOR XR [Suspect]
     Dosage: UNK
     Dates: start: 20110627

REACTIONS (1)
  - DEATH [None]
